FAERS Safety Report 24912684 (Version 4)
Quarter: 2025Q2

REPORT INFORMATION
  Report Type: Report from Study
  Country: US (occurrence: US)
  Receive Date: 20250131
  Receipt Date: 20250602
  Transmission Date: 20250716
  Serious: Yes (Life-Threatening, Other)
  Sender: NOVARTIS
  Company Number: US-002147023-NVSC2024US225129

PATIENT
  Sex: Female

DRUGS (1)
  1. KESIMPTA [Suspect]
     Active Substance: OFATUMUMAB
     Indication: Product used for unknown indication
     Route: 065
     Dates: start: 2024

REACTIONS (9)
  - Suicide attempt [Unknown]
  - Cerebrovascular accident [Unknown]
  - Dyspepsia [Unknown]
  - Gastrointestinal disorder [Unknown]
  - Weight increased [Unknown]
  - Hypersomnia [Unknown]
  - Speech disorder [Unknown]
  - Memory impairment [Unknown]
  - Fear of injection [Unknown]
